FAERS Safety Report 4286858-8 (Version None)
Quarter: 2004Q1

REPORT INFORMATION
  Report Type: 
  Country: None (occurrence: None)
  Receive Date: 20040204
  Receipt Date: 20040129
  Transmission Date: 20041129
  Serious: Yes (Hospitalization)
  Sender: FDA-Public Use
  Company Number: 2004-DE-00371GD

PATIENT
  Age: 48 Year
  Sex: Male

DRUGS (10)
  1. CYCLOPHOSPHAMIDE [Suspect]
     Indication: NON-HODGKIN'S LYMPHOMA
  2. CYCLOPHOSPHAMIDE [Suspect]
     Indication: STEM CELL TRANSPLANT
  3. METHOTREXATE [Suspect]
     Indication: NON-HODGKIN'S LYMPHOMA
     Dosage: IT
     Route: 037
  4. PREDNISONE [Suspect]
     Indication: NON-HODGKIN'S LYMPHOMA
  5. DOXORUBICIN (DOXORUBICIN) [Suspect]
     Indication: NON-HODGKIN'S LYMPHOMA
  6. VINCRISTINE [Suspect]
     Indication: NON-HODGKIN'S LYMPHOMA
  7. IFOSFAMIDE [Suspect]
     Indication: NON-HODGKIN'S LYMPHOMA
  8. CARBOPLATIN [Suspect]
     Indication: NON-HODGKIN'S LYMPHOMA
  9. ETOPOSIDE [Suspect]
     Indication: NON-HODGKIN'S LYMPHOMA
  10. THIOTEPA [Suspect]
     Indication: NON-HODGKIN'S LYMPHOMA

REACTIONS (29)
  - ATRIAL FIBRILLATION [None]
  - BLOOD ALKALINE PHOSPHATASE INCREASED [None]
  - BLOOD BILIRUBIN INCREASED [None]
  - BLOOD PRESSURE INCREASED [None]
  - BLOOD UREA INCREASED [None]
  - BRONCHIECTASIS [None]
  - BRONCHOSCOPY ABNORMAL [None]
  - CHEST X-RAY ABNORMAL [None]
  - DIFFUSE ALVEOLAR DAMAGE [None]
  - DYSPNOEA [None]
  - GRAFT VERSUS HOST DISEASE [None]
  - HAEMOGLOBIN DECREASED [None]
  - HAEMOPTYSIS [None]
  - HEPATIC ENZYME INCREASED [None]
  - HYPOTHYROIDISM [None]
  - IDIOPATHIC THROMBOCYTOPENIC PURPURA [None]
  - INTERNATIONAL NORMALISED RATIO DECREASED [None]
  - LUNG INFILTRATION [None]
  - MITRAL VALVE INCOMPETENCE [None]
  - NON-HODGKIN'S LYMPHOMA RECURRENT [None]
  - PATHOGEN RESISTANCE [None]
  - PERICARDIAL EFFUSION [None]
  - PLEURAL EFFUSION [None]
  - PROTHROMBIN TIME PROLONGED [None]
  - PULMONARY HAEMORRHAGE [None]
  - PULMONARY OEDEMA [None]
  - RALES [None]
  - STEM CELL TRANSPLANT [None]
  - STREPTOCOCCAL INFECTION [None]
